FAERS Safety Report 9630014 (Version 1)
Quarter: 2013Q4

REPORT INFORMATION
  Report Type: Report from Study
  Country: US (occurrence: US)
  Receive Date: 20131017
  Receipt Date: 20131017
  Transmission Date: 20140711
  Serious: Yes (Other)
  Sender: FDA-Public Use
  Company Number: US-ROCHE-1290357

PATIENT
  Age: 78 Year
  Sex: Female

DRUGS (3)
  1. ALTEPLASE [Suspect]
     Indication: ISCHAEMIC STROKE
     Route: 042
     Dates: start: 20120209
  2. EPTIFIBATIDE [Suspect]
     Indication: ISCHAEMIC STROKE
     Dosage: BOLUS
     Route: 065
  3. EPTIFIBATIDE [Suspect]
     Dosage: A 2-HOUR INFUSION AT 0.75 MCG/KG PER MINUTE
     Route: 065

REACTIONS (1)
  - Neurological decompensation [Not Recovered/Not Resolved]
